FAERS Safety Report 5314512-X (Version None)
Quarter: 2007Q2

REPORT INFORMATION
  Report Type: 
  Country: None (occurrence: None)
  Receive Date: 20070427
  Receipt Date: 20070409
  Transmission Date: 20071010
  Serious: Yes (Hospitalization)
  Sender: FDA-Public Use
  Company Number: 012806

PATIENT
  Age: 49 Year
  Sex: Male

DRUGS (3)
  1. PRIALT [Suspect]
     Indication: PAIN
     Dosage: UNK UG, ONCE/HOUR, INTRATHECAL
     Route: 037
     Dates: start: 20051001
  2. BACLOFEN [Concomitant]
  3. CYMBALTA [Concomitant]

REACTIONS (7)
  - CONDITION AGGRAVATED [None]
  - DYSARTHRIA [None]
  - MEMORY IMPAIRMENT [None]
  - PEPTIC ULCER [None]
  - PEPTIC ULCER HAEMORRHAGE [None]
  - SOMNOLENCE [None]
  - VISION BLURRED [None]
